FAERS Safety Report 16718076 (Version 2)
Quarter: 2019Q3

REPORT INFORMATION
  Report Type: Report from Study
  Country: US (occurrence: US)
  Receive Date: 20190819
  Receipt Date: 20190828
  Transmission Date: 20191005
  Serious: Yes (Other)
  Sender: FDA-Public Use
  Company Number: US-TEVA-2019-US-1093567

PATIENT

DRUGS (1)
  1. ARABINOSIDE CYTARABINE [Suspect]
     Active Substance: CYTARABINE
     Indication: EYE INFLAMMATION
     Dosage: INFUSION
     Route: 050

REACTIONS (1)
  - Subcutaneous abscess [Recovering/Resolving]
